FAERS Safety Report 19130541 (Version 1)
Quarter: 2021Q2

REPORT INFORMATION
  Report Type: Other
  Country: JP (occurrence: JP)
  Receive Date: 20210413
  Receipt Date: 20210413
  Transmission Date: 20210717
  Serious: Yes (Other)
  Sender: FDA-Public Use
  Company Number: JP-B.BRAUN MEDICAL INC.-2109261

PATIENT
  Age: 57 Year
  Sex: Female

DRUGS (5)
  1. NSAID [Concomitant]
     Active Substance: UNSPECIFIED INGREDIENT
  2. TRAMADOL HYDROCHLORIDE. [Concomitant]
     Active Substance: TRAMADOL HYDROCHLORIDE
  3. BOTULINUM ?TOXIN INJECTIONS (5?10 IU) [Concomitant]
     Active Substance: BOTULINUM TOXIN NOS
     Route: 042
  4. CLONAZEPAM. [Concomitant]
     Active Substance: CLONAZEPAM
  5. LIDOCAINE HYDROCHLORIDE AND DEXTROSE [Suspect]
     Active Substance: DEXTROSE\LIDOCAINE HYDROCHLORIDE
     Indication: DYSTONIA
     Route: 065

REACTIONS (1)
  - Drug ineffective [None]
